FAERS Safety Report 10778276 (Version 1)
Quarter: 2015Q1

REPORT INFORMATION
  Report Type: Spontaneous
  Country: US (occurrence: US)
  Receive Date: 20150209
  Receipt Date: 20150209
  Transmission Date: 20150721
  Serious: No
  Sender: FDA-Public Use
  Company Number: US-AMGEN-USASP2014059413

PATIENT
  Age: 68 Year
  Sex: Female
  Weight: 66.8 kg

DRUGS (1)
  1. NPLATE [Suspect]
     Active Substance: ROMIPLOSTIM
     Indication: THROMBOCYTOPENIA
     Dosage: UNK UNK, QWK
     Route: 065

REACTIONS (1)
  - Deep vein thrombosis [Unknown]
